FAERS Safety Report 6532203-4 (Version None)
Quarter: 2010Q1

REPORT INFORMATION
  Report Type: 
  Country: None (occurrence: None)
  Receive Date: 20100107
  Receipt Date: 20100107
  Transmission Date: 20100710
  Serious: Yes (Other)
  Sender: FDA-Public Use
  Company Number: None

PATIENT
  Age: 42 Year
  Sex: Female
  Weight: 90.7194 kg

DRUGS (1)
  1. LACTAID FAST ACT ULTRA MCNEIL NUTRITIONALS [Suspect]
     Indication: DRUG HYPERSENSITIVITY
     Dosage: 1 PILL EVERY TIME W/ DAIRY PO
     Route: 048
     Dates: start: 20091227, end: 20100104

REACTIONS (11)
  - ABDOMINAL PAIN UPPER [None]
  - CHEST PAIN [None]
  - CHILLS [None]
  - DISCOMFORT [None]
  - DYSPNOEA [None]
  - FATIGUE [None]
  - MALAISE [None]
  - MUSCLE SPASMS [None]
  - PAIN [None]
  - PYREXIA [None]
  - VOMITING [None]
